FAERS Safety Report 9980371 (Version 1)
Quarter: 2014Q1

REPORT INFORMATION
  Report Type: Report from Study
  Country: US (occurrence: US)
  Receive Date: 20140307
  Receipt Date: 20140307
  Transmission Date: 20141002
  Serious: Yes (Other)
  Sender: FDA-Public Use
  Company Number: US-ROCHE-1332932

PATIENT
  Sex: Female

DRUGS (7)
  1. LUCENTIS [Suspect]
     Indication: RETINAL VEIN OCCLUSION
     Route: 050
  2. LUCENTIS [Suspect]
     Route: 050
  3. LISINOPRIL [Concomitant]
     Route: 065
  4. ASA [Concomitant]
     Route: 065
  5. VITAMIN C [Concomitant]
  6. LOSARTAN [Concomitant]
  7. MICARDIS [Concomitant]

REACTIONS (7)
  - Lung adenocarcinoma [Unknown]
  - Vision blurred [Unknown]
  - Asthenopia [Unknown]
  - Headache [Unknown]
  - Malaise [Unknown]
  - Memory impairment [Unknown]
  - Visual acuity reduced [Unknown]
